FAERS Safety Report 7320979-8 (Version None)
Quarter: 2011Q1

REPORT INFORMATION
  Report Type: 
  Country: None (occurrence: None)
  Receive Date: 20110228
  Receipt Date: 20110204
  Transmission Date: 20110831
  Serious: No
  Sender: FDA-Public Use
  Company Number: US-ROCHE-761590

PATIENT
  Sex: Male

DRUGS (2)
  1. TAMIFLU [Suspect]
     Indication: INFLUENZA
     Dosage: STRENGTH: 12 MG/ML, LAST DOSE RECEIVED ON 02 FEB 2011
     Route: 048
     Dates: start: 20110201
  2. CEPHALEXIN [Concomitant]
     Dosage: DOSE: 50 MG EVERY 12 HOUR
     Dates: start: 20110201, end: 20110203

REACTIONS (2)
  - DRUG ADMINISTRATION ERROR [None]
  - NO ADVERSE EVENT [None]
